FAERS Safety Report 10072470 (Version 1)
Quarter: 2014Q2

REPORT INFORMATION
  Report Type: Report from Study
  Country: US (occurrence: US)
  Receive Date: 20140411
  Receipt Date: 20140411
  Transmission Date: 20141212
  Serious: Yes (Other)
  Sender: FDA-Public Use
  Company Number: US-ALEXION PHARMACEUTICALS INC.-A200800642

PATIENT
  Sex: Female

DRUGS (1)
  1. ECULIZUMAB [Suspect]
     Dosage: UNK
     Route: 042

REACTIONS (2)
  - Headache [Unknown]
  - Packed red blood cell transfusion [Unknown]
